FAERS Safety Report 15171438 (Version 1)
Quarter: 2018Q3

REPORT INFORMATION
  Report Type: Spontaneous
  Country: US (occurrence: US)
  Receive Date: 20180720
  Receipt Date: 20180720
  Transmission Date: 20181010
  Serious: Yes (Hospitalization)
  Sender: FDA-Public Use
  Company Number: US-MYLANLABS-2018M1053542

PATIENT
  Age: 50 Year
  Sex: Male

DRUGS (4)
  1. RANOLAZINE. [Concomitant]
     Active Substance: RANOLAZINE
     Indication: PRINZMETAL ANGINA
     Route: 065
  2. GLYCERYL TRINITRATE [Suspect]
     Active Substance: NITROGLYCERIN
     Indication: PRINZMETAL ANGINA
     Route: 060
  3. ASPIRIN                            /00002701/ [Concomitant]
     Active Substance: ASPIRIN
     Indication: PRINZMETAL ANGINA
     Route: 065
  4. ISOSORBIDE. [Concomitant]
     Active Substance: ISOSORBIDE
     Indication: PRINZMETAL ANGINA
     Route: 065

REACTIONS (2)
  - Myocardial bridging [Recovering/Resolving]
  - Condition aggravated [Recovering/Resolving]
